FAERS Safety Report 13819405 (Version 14)
Quarter: 2018Q4

REPORT INFORMATION
  Report Type: Spontaneous
  Country: JP (occurrence: JP)
  Receive Date: 20170801
  Receipt Date: 20181010
  Transmission Date: 20190204
  Serious: Yes (Hospitalization)
  Sender: FDA-Public Use
  Company Number: JP-009507513-1706JPN000117J

PATIENT
  Age: 53 Year
  Sex: Male
  Weight: 54 kg

DRUGS (8)
  1. KEYTRUDA [Suspect]
     Active Substance: PEMBROLIZUMAB
     Indication: LUNG ADENOCARCINOMA STAGE III
     Dosage: 200 MG, Q3W
     Route: 041
     Dates: start: 20170413, end: 20170413
  2. GASTER [Concomitant]
     Active Substance: FAMOTIDINE
     Indication: PROPHYLAXIS
     Dosage: 20.0 MG, BID
     Route: 048
     Dates: end: 20170429
  3. KEYTRUDA [Suspect]
     Active Substance: PEMBROLIZUMAB
     Dosage: 200 MG, Q3W
     Route: 041
     Dates: start: 20170928, end: 20171221
  4. KEYTRUDA [Suspect]
     Active Substance: PEMBROLIZUMAB
     Dosage: 200 MG, Q3W
     Route: 041
     Dates: start: 20170608, end: 20170831
  5. CELECOX [Concomitant]
     Active Substance: CELECOXIB
     Dosage: 100.0 MG, BID
     Route: 048
     Dates: end: 20170420
  6. LOXONIN [Concomitant]
     Active Substance: LOXOPROFEN SODIUM
     Indication: JUGULAR VEIN THROMBOSIS
     Dosage: 60 MG, PRN
     Route: 048
     Dates: start: 20170420, end: 20170430
  7. LIXIANA [Concomitant]
     Active Substance: EDOXABAN TOSYLATE
     Dosage: 30.0 MG, QD
     Route: 048
     Dates: end: 20170427
  8. GENINAX [Concomitant]
     Active Substance: GARENOXACIN MESYLATE
     Dosage: UNK
     Route: 048

REACTIONS (15)
  - Alanine aminotransferase increased [Recovered/Resolved]
  - Hypercalcaemia [Recovered/Resolved]
  - Diarrhoea [Recovered/Resolved]
  - Pruritus [Recovered/Resolved]
  - Diarrhoea [Recovered/Resolved]
  - Dysgeusia [Recovering/Resolving]
  - Back pain [Recovered/Resolved]
  - Aspartate aminotransferase increased [Recovered/Resolved]
  - Hyponatraemia [Recovered/Resolved]
  - Weight increased [Recovering/Resolving]
  - Malaise [Recovered/Resolved]
  - Rash [Recovering/Resolving]
  - Thrombophlebitis [Recovered/Resolved]
  - Aspartate aminotransferase increased [Recovered/Resolved]
  - Arthritis [Recovered/Resolved]

NARRATIVE: CASE EVENT DATE: 20170413
